FAERS Safety Report 6871819-2 (Version None)
Quarter: 2010Q3

REPORT INFORMATION
  Report Type: 
  Country: None (occurrence: None)
  Receive Date: 20100723
  Receipt Date: 20100715
  Transmission Date: 20110219
  Serious: Yes (Death, Hospitalization)
  Sender: FDA-Public Use
  Company Number: B0666590A

PATIENT
  Age: 76 Year
  Sex: Male

DRUGS (6)
  1. AUGMENTIN '125' [Suspect]
     Indication: PROPHYLAXIS
     Route: 048
     Dates: start: 20100418, end: 20100424
  2. SIMVASTATIN [Suspect]
     Indication: PRODUCT USED FOR UNKNOWN INDICATION
     Route: 048
     Dates: start: 20100407, end: 20100426
  3. DEPRAX [Concomitant]
     Indication: DEPRESSION
     Route: 048
     Dates: start: 20090414, end: 20100405
  4. DEPRAX [Concomitant]
     Route: 048
     Dates: start: 20100406, end: 20100426
  5. CITALOPRAM [Concomitant]
     Indication: DEPRESSION
     Route: 048
     Dates: start: 20080923, end: 20100426
  6. EMCONCOR [Concomitant]
     Route: 048
     Dates: start: 20081101, end: 20100426

REACTIONS (2)
  - HEPATIC FAILURE [None]
  - HEPATITIS ACUTE [None]
